FAERS Safety Report 7119970-6 (Version None)
Quarter: 2010Q4

REPORT INFORMATION
  Report Type: 
  Country: None (occurrence: None)
  Receive Date: 20101123
  Receipt Date: 20101115
  Transmission Date: 20110411
  Serious: Yes (Other)
  Sender: FDA-Public Use
  Company Number: CA-ROCHE-739988

PATIENT
  Sex: Female

DRUGS (1)
  1. ACCUTANE [Suspect]
     Indication: ACNE
     Route: 048
     Dates: start: 20100301, end: 20100707

REACTIONS (3)
  - CANDIDIASIS [None]
  - CHEILITIS [None]
  - STENOTROPHOMONAS INFECTION [None]
